FAERS Safety Report 11742520 (Version 1)
Quarter: 2015Q4

REPORT INFORMATION
  Report Type: Spontaneous
  Country: US (occurrence: None)
  Receive Date: 20151113
  Receipt Date: 20151113
  Transmission Date: 20160304
  Serious: Yes (Hospitalization)
  Sender: FDA-Public Use
  Company Number: None

PATIENT
  Age: 16 Year
  Sex: Male
  Weight: 64.8 kg

DRUGS (3)
  1. DAUNORUBICIN [Suspect]
     Active Substance: DAUNORUBICIN
     Dates: end: 20151109
  2. ETOPOSIDE (VP-16) [Suspect]
     Active Substance: ETOPOSIDE
     Dates: end: 20151109
  3. CYTARABINE. [Suspect]
     Active Substance: CYTARABINE
     Dates: end: 20151110

REACTIONS (3)
  - Leukocytosis [None]
  - Disseminated intravascular coagulation [None]
  - Acute kidney injury [None]

NARRATIVE: CASE EVENT DATE: 20151110
